FAERS Safety Report 9340467 (Version 2)
Quarter: 2013Q2

REPORT INFORMATION
  Report Type: Spontaneous
  Country: IT (occurrence: IT)
  Receive Date: 20130610
  Receipt Date: 20130621
  Transmission Date: 20140414
  Serious: Yes (Other)
  Sender: FDA-Public Use
  Company Number: IT-VERTEX PHARMACEUTICALS INC-2013-006898

PATIENT
  Age: 52 Year
  Sex: Male
  Weight: 53 kg

DRUGS (2)
  1. INCIVO [Suspect]
     Indication: HEPATITIS C
     Route: 048
  2. INTERFERON [Suspect]
     Indication: HEPATITIS C
     Dosage: DOSAGE FORM: UNSPECIFIED
     Route: 065

REACTIONS (4)
  - Infection [Unknown]
  - Pyrexia [Recovered/Resolved]
  - Anaemia [Recovered/Resolved]
  - Off label use [Recovered/Resolved]
